FAERS Safety Report 8307193-4 (Version None)
Quarter: 2012Q2

REPORT INFORMATION
  Report Type: 
  Country: None (occurrence: None)
  Receive Date: 20120424
  Receipt Date: 20120416
  Transmission Date: 20120825
  Serious: Yes (Congenital Anomaly, Other)
  Sender: FDA-Public Use
  Company Number: DE-UCBSA-055608

PATIENT
  Sex: Female
  Weight: 2.26 kg

DRUGS (2)
  1. VALPROIC ACID [Suspect]
     Indication: EPILEPSY
     Dosage: 300 -150 - 300 (750 MG/DAY)
     Route: 064
     Dates: end: 20100801
  2. KEPPRA [Suspect]
     Indication: EPILEPSY
     Route: 064
     Dates: end: 20100801

REACTIONS (5)
  - CONGENITAL KNEE DISLOCATION [None]
  - LOW SET EARS [None]
  - PREMATURE BABY [None]
  - FOETAL EXPOSURE DURING PREGNANCY [None]
  - HYPOPLASTIC LEFT HEART SYNDROME [None]
